FAERS Safety Report 14010291 (Version 2)
Quarter: 2017Q4

REPORT INFORMATION
  Report Type: Spontaneous
  Country: IN (occurrence: IN)
  Receive Date: 20170926
  Receipt Date: 20171102
  Transmission Date: 20180321
  Serious: Yes (Other)
  Sender: FDA-Public Use
  Company Number: IN-ROCHE-1998762

PATIENT
  Age: 59 Year
  Sex: Female

DRUGS (2)
  1. ACTILYSE [Suspect]
     Active Substance: ALTEPLASE
     Indication: ISCHAEMIC STROKE
  2. ACTILYSE [Suspect]
     Active Substance: ALTEPLASE
     Indication: HEMIPLEGIA
     Route: 065

REACTIONS (2)
  - Somnolence [Unknown]
  - Cerebral haemorrhage [Unknown]
